FAERS Safety Report 24786209 (Version 1)
Quarter: 2024Q4

REPORT INFORMATION
  Report Type: Spontaneous
  Country: US (occurrence: US)
  Receive Date: 20241229
  Receipt Date: 20241229
  Transmission Date: 20250115
  Serious: No
  Sender: ROCHE
  Company Number: US-ROCHE-10000166585

PATIENT
  Sex: Female

DRUGS (8)
  1. ESBRIET [Suspect]
     Active Substance: PIRFENIDONE
     Indication: Interstitial lung disease
     Route: 065
  2. CULTURELLE [Concomitant]
     Active Substance: LACTOBACILLUS RHAMNOSUS
  3. DEMANNOSE [Concomitant]
     Active Substance: DEMANNOSE
  4. FUROSEMIDE [Concomitant]
     Active Substance: FUROSEMIDE
  5. GEMTESA [Concomitant]
     Active Substance: VIBEGRON
  6. MAGNESIUM [Concomitant]
     Active Substance: MAGNESIUM
  7. METHIMAZOLE [Concomitant]
     Active Substance: METHIMAZOLE
  8. PREDNISONE [Concomitant]
     Active Substance: PREDNISONE

REACTIONS (1)
  - Nausea [Unknown]
